FAERS Safety Report 16327302 (Version 1)
Quarter: 2019Q2

REPORT INFORMATION
  Report Type: Spontaneous
  Country: US (occurrence: US)
  Receive Date: 20190517
  Receipt Date: 20190517
  Transmission Date: 20190711
  Serious: No
  Sender: FDA-Public Use
  Company Number: US-SUNOVION-2019SUN002038

PATIENT
  Age: 31 Year
  Sex: Female

DRUGS (2)
  1. LATUDA [Suspect]
     Active Substance: LURASIDONE HYDROCHLORIDE
     Indication: BIPOLAR DISORDER
     Dosage: 40 MG
     Route: 048
  2. LATUDA [Suspect]
     Active Substance: LURASIDONE HYDROCHLORIDE
     Dosage: 20 MG
     Route: 048

REACTIONS (12)
  - Gastrointestinal disorder [Unknown]
  - Anxiety [Unknown]
  - Product administration error [Unknown]
  - Vomiting [Unknown]
  - Drug ineffective [Unknown]
  - Feeling abnormal [Unknown]
  - Restlessness [Unknown]
  - Bipolar disorder [Unknown]
  - Fatigue [Unknown]
  - Psychotic disorder [Unknown]
  - Memory impairment [Unknown]
  - Nausea [Unknown]
